FAERS Safety Report 8390816-1 (Version None)
Quarter: 2012Q2

REPORT INFORMATION
  Report Type: 
  Country: None (occurrence: None)
  Receive Date: 20120529
  Receipt Date: 20120521
  Transmission Date: 20120825
  Serious: Yes (Hospitalization, Other)
  Sender: FDA-Public Use
  Company Number: US-ASTELLAS-2012US004981

PATIENT
  Age: 46 Year
  Sex: Female
  Weight: 58 kg

DRUGS (14)
  1. LEVOTHYROXINE SODIUM [Concomitant]
     Indication: HYPOTHYROIDISM
     Dosage: UNK
     Route: 065
     Dates: start: 19920615
  2. MAALOX ANTACID BARRIER [Concomitant]
     Indication: ANTACID THERAPY
     Dosage: UNK
     Route: 065
     Dates: start: 20100219, end: 20100220
  3. ZOFRAN [Concomitant]
     Indication: VOMITING
  4. ERLOTINIB HYDROCHLORIDE [Suspect]
     Dosage: 100 MG, UID/QD
     Route: 048
     Dates: start: 20100309, end: 20100310
  5. IBUPROFEN [Concomitant]
     Indication: PAIN
     Dosage: UNK
     Route: 065
     Dates: start: 20100211, end: 20100211
  6. ERLOTINIB HYDROCHLORIDE [Suspect]
     Dosage: 100 MG, UID/QD
     Route: 048
     Dates: start: 20100227, end: 20100301
  7. CRIZOTINIB [Suspect]
     Indication: NON-SMALL CELL LUNG CANCER
     Dosage: 200 MG, BID
     Route: 065
     Dates: start: 20100217, end: 20100225
  8. ACETAMINOPHEN AND HYDROCODONE BITARTRATE [Concomitant]
     Indication: PAIN
     Dosage: UNK
     Route: 065
     Dates: start: 20100112
  9. CRIZOTINIB [Suspect]
     Dosage: 150 MG, BID
     Route: 065
     Dates: start: 20100227, end: 20100228
  10. ERLOTINIB HYDROCHLORIDE [Suspect]
     Indication: NON-SMALL CELL LUNG CANCER
     Dosage: 100 MG, UID/QD
     Route: 048
     Dates: start: 20100211, end: 20100225
  11. ZOFRAN [Concomitant]
     Indication: NAUSEA
     Dosage: UNK
     Route: 065
     Dates: start: 20100220, end: 20100225
  12. OMEPRAZOLE [Concomitant]
     Indication: DYSPHAGIA
     Dosage: UNK
     Route: 065
     Dates: start: 20100220, end: 20100221
  13. CRIZOTINIB [Suspect]
     Dosage: 150 MG, BID
     Route: 065
     Dates: start: 20100309, end: 20100310
  14. ZOLEDRONIC ACID [Concomitant]
     Indication: METASTASES TO BONE
     Dosage: UNK
     Route: 065
     Dates: start: 20100108

REACTIONS (11)
  - RETCHING [None]
  - OESOPHAGITIS [None]
  - INCORRECT DOSE ADMINISTERED [None]
  - OESOPHAGEAL STENOSIS [None]
  - DYSPHAGIA [None]
  - CHOKING SENSATION [None]
  - CHEST PAIN [None]
  - CHEST DISCOMFORT [None]
  - DYSKINESIA OESOPHAGEAL [None]
  - VOMITING [None]
  - GASTRITIS [None]
